FAERS Safety Report 7248906-2 (Version None)
Quarter: 2011Q1

REPORT INFORMATION
  Report Type: 
  Country: None (occurrence: None)
  Receive Date: 20110128
  Receipt Date: 20100308
  Transmission Date: 20110831
  Serious: Yes (Hospitalization, Other)
  Sender: FDA-Public Use
  Company Number: US-BAYER-201016360NA

PATIENT
  Sex: Female
  Weight: 219.96 kg

DRUGS (2)
  1. YASMIN [Suspect]
     Dosage: UNK
  2. YASMIN [Suspect]
     Indication: PREMENSTRUAL SYNDROME
     Dosage: AS USED DOSE: UNK
     Route: 048
     Dates: start: 20040601, end: 20071001

REACTIONS (1)
  - PULMONARY EMBOLISM [None]
